FAERS Safety Report 16810110 (Version 2)
Quarter: 2019Q4

REPORT INFORMATION
  Report Type: Spontaneous
  Country: KR (occurrence: KR)
  Receive Date: 20190916
  Receipt Date: 20191024
  Transmission Date: 20200122
  Serious: Yes (Other)
  Sender: FDA-Public Use
  Company Number: KR-MYLANLABS-2019M1000461

PATIENT
  Age: 47 Year

DRUGS (1)
  1. CLOZARIL [Suspect]
     Active Substance: CLOZAPINE
     Indication: PRODUCT USED FOR UNKNOWN INDICATION
     Dosage: UNK

REACTIONS (3)
  - White blood cell count decreased [Recovered/Resolved]
  - Neutrophil percentage increased [Recovered/Resolved]
  - Neutrophil percentage decreased [Recovered/Resolved]

NARRATIVE: CASE EVENT DATE: 20181228
